FAERS Safety Report 9745723 (Version 3)
Quarter: 2016Q4

REPORT INFORMATION
  Report Type: Report from Study
  Country: FR (occurrence: FR)
  Receive Date: 20131211
  Receipt Date: 20161220
  Transmission Date: 20170207
  Serious: Yes (Hospitalization, Other)
  Sender: FDA-Public Use
  Company Number: FR-ASTELLAS-2013US012839

PATIENT
  Age: 3 Year
  Sex: Male

DRUGS (8)
  1. ATODERM [Concomitant]
     Indication: PRODUCT USED FOR UNKNOWN INDICATION
     Dosage: UNK UNK, ONCE DAILY
     Route: 065
     Dates: start: 2010
  2. FUCIDINE                           /00065701/ [Concomitant]
     Active Substance: FUSIDIC ACID
     Indication: DERMATITIS ATOPIC
     Dosage: UNK, UNKNOWN FREQ.
     Route: 065
  3. TACROLIMUS. [Suspect]
     Active Substance: TACROLIMUS
     Dosage: 0.1 %, ONCE A DAY TWICE WEEKLY
     Route: 061
     Dates: start: 201601
  4. CLOBEX                             /00012002/ [Concomitant]
     Active Substance: CLOXACILLIN SODIUM
     Indication: DERMATITIS ATOPIC
     Dosage: UNK UNK, UNKNOWN FREQ.
     Route: 065
  5. DIPROSONE                          /00008502/ [Concomitant]
     Active Substance: BETAMETHASONE SODIUM PHOSPHATE
     Indication: DERMATITIS ATOPIC
     Route: 065
  6. ATOPICLAIR [Concomitant]
     Indication: DERMATITIS ATOPIC
     Dosage: UNK UNK, UNKNOWN FREQ.
     Route: 065
  7. DEXERYL                            /00557601/ [Concomitant]
     Active Substance: GLYCERIN\PARAFFIN
     Indication: DERMATITIS ATOPIC
     Dosage: UNK, UNKNOWN FREQ.
     Route: 065
  8. TACROLIMUS. [Suspect]
     Active Substance: TACROLIMUS
     Indication: DERMATITIS ATOPIC
     Dosage: 0.1 %, ONCE WEEKLY
     Route: 061
     Dates: start: 20080215

REACTIONS (4)
  - Asthma [Unknown]
  - Abscess [Unknown]
  - Tonsillectomy [Unknown]
  - Off label use [Unknown]

NARRATIVE: CASE EVENT DATE: 20100719
